FAERS Safety Report 8036567-4 (Version None)
Quarter: 2012Q1

REPORT INFORMATION
  Report Type: 
  Country: None (occurrence: None)
  Receive Date: 20120111
  Receipt Date: 20120105
  Transmission Date: 20120608
  Serious: Yes (Hospitalization)
  Sender: FDA-Public Use
  Company Number: PT-B.I. PHARMACEUTICALS,INC./RIDGEFIELD-2011-EU-00327PO

PATIENT
  Sex: Male
  Weight: 70 kg

DRUGS (4)
  1. ATACAND [Concomitant]
  2. PRADAXA [Suspect]
     Indication: ATRIAL FIBRILLATION
  3. LOPRESSOR [Concomitant]
  4. PRADAXA [Suspect]
     Indication: CEREBROVASCULAR ACCIDENT PROPHYLAXIS
     Dosage: 220 MG
     Dates: start: 20111031, end: 20111102

REACTIONS (9)
  - LIVER DISORDER [None]
  - HEPATIC CIRRHOSIS [None]
  - TOXIC SKIN ERUPTION [None]
  - LEUKOCYTOCLASTIC VASCULITIS [None]
  - ARTHRALGIA [None]
  - PORTAL HYPERTENSION [None]
  - BLISTER [None]
  - EXTREMITY NECROSIS [None]
  - PYREXIA [None]
